FAERS Safety Report 11634352 (Version 1)
Quarter: 2015Q4

REPORT INFORMATION
  Report Type: Spontaneous
  Country: US (occurrence: US)
  Receive Date: 20151015
  Receipt Date: 20151015
  Transmission Date: 20160304
  Serious: Yes (Hospitalization, Other)
  Sender: FDA-Public Use
  Company Number: US-JNJFOC-20151006211

PATIENT
  Sex: Male

DRUGS (1)
  1. XARELTO [Suspect]
     Active Substance: RIVAROXABAN
     Indication: ATRIAL FIBRILLATION
     Route: 065
     Dates: start: 201302

REACTIONS (8)
  - Ulcer haemorrhage [Unknown]
  - Cerebrovascular accident [Unknown]
  - Eye haemorrhage [Unknown]
  - Epistaxis [Unknown]
  - Haemorrhage [Unknown]
  - Intestinal haemorrhage [Unknown]
  - Haematuria [Unknown]
  - Vitreous haemorrhage [Unknown]

NARRATIVE: CASE EVENT DATE: 20131028
